FAERS Safety Report 21812206 (Version 1)
Quarter: 2023Q1

REPORT INFORMATION
  Report Type: Spontaneous
  Country: FR (occurrence: None)
  Receive Date: 20230103
  Receipt Date: 20230103
  Transmission Date: 20230418
  Serious: Yes (Hospitalization)
  Sender: FDA-Public Use
  Company Number: 2022A418197

PATIENT
  Age: 48 Year
  Sex: Male
  Weight: 126 kg

DRUGS (1)
  1. XIGDUO XR [Suspect]
     Active Substance: DAPAGLIFLOZIN PROPANEDIOL\METFORMIN HYDROCHLORIDE
     Indication: Type 2 diabetes mellitus
     Route: 065
     Dates: start: 202209, end: 20221219

REACTIONS (2)
  - Dermo-hypodermitis [Recovering/Resolving]
  - Skin necrosis [Recovering/Resolving]

NARRATIVE: CASE EVENT DATE: 20221201
